FAERS Safety Report 8941798 (Version 2)
Quarter: 2013Q1

REPORT INFORMATION
  Report Type: Spontaneous
  Country: US (occurrence: US)
  Receive Date: 20121203
  Receipt Date: 20130122
  Transmission Date: 20140127
  Serious: No
  Sender: FDA-Public Use
  Company Number: US-009507513-1211USA010318

PATIENT
  Sex: Female
  Weight: 68 kg

DRUGS (3)
  1. VICTRELIS [Suspect]
     Indication: HEPATITIS C
     Dosage: 4 CAPS EVERY 7-9 HOURS, QD
     Route: 048
     Dates: start: 201206
  2. PEGASYS [Suspect]
  3. RIBASPHERE [Suspect]

REACTIONS (2)
  - Pollakiuria [Unknown]
  - Anaemia [Unknown]
